FAERS Safety Report 25832735 (Version 1)
Quarter: 2025Q3

REPORT INFORMATION
  Report Type: Spontaneous
  Country: CO (occurrence: CO)
  Receive Date: 20250922
  Receipt Date: 20250922
  Transmission Date: 20251020
  Serious: Yes (Hospitalization)
  Sender: REGENERON
  Company Number: CO-BAYER-2025A124148

PATIENT
  Sex: Female

DRUGS (1)
  1. EYLEA [Suspect]
     Active Substance: AFLIBERCEPT
     Indication: Macular degeneration
     Dosage: 40 MG, Q1MON, SOLUTION FOR INJECTION, 40 MG/ML
     Route: 031

REACTIONS (1)
  - Umbilical hernia repair [Recovered/Resolved]
